FAERS Safety Report 15632779 (Version 2)
Quarter: 2018Q4

REPORT INFORMATION
  Report Type: Spontaneous
  Country: FR (occurrence: FR)
  Receive Date: 20181119
  Receipt Date: 20181205
  Transmission Date: 20190205
  Serious: Yes (Other)
  Sender: FDA-Public Use
  Company Number: FR-SA-2018SA314294

PATIENT
  Age: 65 Year
  Sex: Female
  Weight: 70 kg

DRUGS (3)
  1. AFLIBERCEPT [Suspect]
     Active Substance: AFLIBERCEPT
     Indication: COLON CANCER METASTATIC
     Dosage: UNK, UNK
     Route: 042
     Dates: start: 20180803, end: 20180803
  2. FOLFIRI [Suspect]
     Active Substance: FLUOROURACIL\IRINOTECAN\LEUCOVORIN
     Indication: COLON CANCER METASTATIC
     Dosage: 240 MG, UNK
     Route: 042
     Dates: start: 20180803, end: 20180803
  3. 5 FU [Concomitant]
     Active Substance: FLUOROURACIL
     Indication: COLON CANCER METASTATIC
     Dosage: 4000 MG, UNK
     Route: 042
     Dates: start: 20180803, end: 20180803

REACTIONS (5)
  - Toxic epidermal necrolysis [Unknown]
  - Dermatitis exfoliative generalised [Recovered/Resolved]
  - Oedema [Recovered/Resolved]
  - Toxic skin eruption [Unknown]
  - Pruritus [Recovered/Resolved]

NARRATIVE: CASE EVENT DATE: 20180802
